FAERS Safety Report 6021777-8 (Version None)
Quarter: 2008Q4

REPORT INFORMATION
  Report Type: 
  Country: None (occurrence: None)
  Receive Date: 20081229
  Receipt Date: 20081223
  Transmission Date: 20090506
  Serious: Yes (Death)
  Sender: FDA-Public Use
  Company Number: US-ASTRAZENECA-2008AC03384

PATIENT
  Age: 41 Year
  Sex: Female

DRUGS (6)
  1. ATENOLOL [Suspect]
     Route: 048
  2. CARISOPRODOL [Suspect]
     Route: 048
  3. OPIOID [Suspect]
     Route: 048
  4. BENZODIAZEPINE [Suspect]
  5. AMITRIPTYLINE [Suspect]
  6. METHADONE [Suspect]

REACTIONS (1)
  - COMPLETED SUICIDE [None]
